FAERS Safety Report 9243378 (Version 1)
Quarter: 2013Q2

REPORT INFORMATION
  Report Type: Spontaneous
  Country: US (occurrence: US)
  Receive Date: 20130420
  Receipt Date: 20130420
  Transmission Date: 20140414
  Serious: Yes (Other)
  Sender: FDA-Public Use
  Company Number: US-B.I. PHARMACEUTICALS,INC./RIDGEFIELD-2013-BI-09760BP

PATIENT
  Sex: Female
  Weight: 95 kg

DRUGS (3)
  1. SPIRIVA [Suspect]
     Indication: CHRONIC OBSTRUCTIVE PULMONARY DISEASE
     Dosage: 18 MCG
     Route: 055
     Dates: start: 2008
  2. SYNTHROID [Concomitant]
     Dosage: 125 MCG
     Route: 048
  3. BENICAR [Concomitant]
     Indication: HYPERTENSION
     Route: 048

REACTIONS (8)
  - Lung neoplasm malignant [Not Recovered/Not Resolved]
  - Meniscus injury [Recovered/Resolved]
  - Synovial cyst [Recovered/Resolved]
  - Blood pressure increased [Recovered/Resolved]
  - Oral infection [Not Recovered/Not Resolved]
  - Weight increased [Not Recovered/Not Resolved]
  - Myalgia [Not Recovered/Not Resolved]
  - Headache [Recovered/Resolved]
